FAERS Safety Report 17588513 (Version 1)
Quarter: 2020Q1

REPORT INFORMATION
  Report Type: Spontaneous
  Country: CA (occurrence: CA)
  Receive Date: 20200326
  Receipt Date: 20200326
  Transmission Date: 20200409
  Serious: Yes (Disabling)
  Sender: FDA-Public Use
  Company Number: CA-TEVA-2020-CA-1213753

PATIENT
  Sex: Female
  Weight: 57 kg

DRUGS (4)
  1. RABEPRAZOLE [Concomitant]
     Active Substance: RABEPRAZOLE
  2. NITRO-DUR [Concomitant]
     Active Substance: NITROGLYCERIN
  3. BISOPROLOL [Concomitant]
     Active Substance: BISOPROLOL
  4. ACT PRAMIPEXOLE [Suspect]
     Active Substance: PRAMIPEXOLE
     Indication: MOVEMENT DISORDER
     Dosage: 3 DOSAGE FORMS DAILY;

REACTIONS (2)
  - Pain in extremity [Unknown]
  - Muscle spasms [Unknown]
